FAERS Safety Report 5982062-3 (Version None)
Quarter: 2008Q4

REPORT INFORMATION
  Report Type: 
  Country: None (occurrence: None)
  Receive Date: 20081202
  Receipt Date: 20081119
  Transmission Date: 20090506
  Serious: Yes (Other)
  Sender: FDA-Public Use
  Company Number: 310042J08USA

PATIENT
  Sex: Female
  Weight: 111 kg

DRUGS (5)
  1. GONAL-F [Suspect]
     Indication: ASSISTED FERTILISATION
     Dosage: 150, 2 IN 1 DAYS; 150
     Dates: start: 20080301, end: 20080101
  2. GONAL-F [Suspect]
     Indication: ASSISTED FERTILISATION
     Dosage: 150, 2 IN 1 DAYS; 150
     Dates: start: 20080522, end: 20080531
  3. GANIRELIX ACETATE INJECTION [Suspect]
     Indication: IN VITRO FERTILISATION
     Dosage: 2 DOSAGE FORMS
     Dates: start: 20080101
  4. OVIDREL [Suspect]
     Indication: INFERTILITY FEMALE
     Dates: start: 20080301, end: 20080101
  5. OVIDREL [Suspect]
     Indication: INFERTILITY FEMALE
     Dates: start: 20080601, end: 20080101

REACTIONS (3)
  - ABORTION SPONTANEOUS [None]
  - DRUG EXPOSURE DURING PREGNANCY [None]
  - POLLAKIURIA [None]
